FAERS Safety Report 7233646-6 (Version None)
Quarter: 2011Q1

REPORT INFORMATION
  Report Type: 
  Country: None (occurrence: None)
  Receive Date: 20110107
  Receipt Date: 20101228
  Transmission Date: 20110831
  Serious: Yes (Hospitalization)
  Sender: FDA-Public Use
  Company Number: UTC-003755

PATIENT
  Age: 35 Year
  Sex: Female
  Weight: 39 kg

DRUGS (3)
  1. COUMADIN [Concomitant]
  2. TYVASO [Suspect]
     Indication: PULMONARY ARTERIAL HYPERTENSION
     Dosage: (18-54 MICROGRAMS 3-4 TIMES PER DAY), INHALATION
     Route: 055
     Dates: start: 20100326
  3. TRACLEER [Concomitant]

REACTIONS (1)
  - CEREBROVASCULAR ACCIDENT [None]
